FAERS Safety Report 7669612-6 (Version None)
Quarter: 2011Q3

REPORT INFORMATION
  Report Type: 
  Country: None (occurrence: None)
  Receive Date: 20110808
  Receipt Date: 20110726
  Transmission Date: 20111222
  Serious: Yes (Other)
  Sender: FDA-Public Use
  Company Number: JP-PFIZER INC-2011125224

PATIENT
  Age: 61 Year
  Sex: Female
  Weight: 62.1 kg

DRUGS (8)
  1. ATORVASTATIN CALCIUM [Suspect]
     Indication: HYPERCHOLESTEROLAEMIA
     Dosage: 10 MG, 1X/DAY
     Route: 048
     Dates: start: 20100914, end: 20101110
  2. ALLOPURINOL [Concomitant]
     Indication: HYPERURICAEMIA
     Dosage: UNK
     Route: 048
  3. PREDNISOLONE [Concomitant]
     Dosage: 40 MG, DAILY
     Route: 048
     Dates: start: 20101224, end: 20110517
  4. DIART [Concomitant]
     Indication: CARDIAC FAILURE CONGESTIVE
     Dosage: UNK
     Route: 048
  5. PREDNISOLONE [Concomitant]
     Indication: NEPHROTIC SYNDROME
     Dosage: 2.5 MG, UNK
     Route: 048
  6. PERSANTIN [Concomitant]
     Indication: NEPHROTIC SYNDROME
     Dosage: UNK
     Route: 048
  7. PREDNISOLONE [Concomitant]
     Dosage: 30 MG, DAILY
     Route: 048
     Dates: start: 20101102, end: 20101224
  8. PREDNISOLONE [Concomitant]
     Dosage: 15 MG, 1X/DAY
     Route: 048

REACTIONS (1)
  - NEPHROTIC SYNDROME [None]
